FAERS Safety Report 17332924 (Version 3)
Quarter: 2020Q3

REPORT INFORMATION
  Report Type: Report from Study
  Country: None (occurrence: US)
  Receive Date: 20200128
  Receipt Date: 20200729
  Transmission Date: 20201102
  Serious: Yes (Hospitalization, Other)
  Sender: FDA-Public Use
  Company Number: US-ABBVIE-19K-163-2875237-00

PATIENT
  Age: 34 Year
  Sex: Female

DRUGS (2)
  1. HUMIRA [Suspect]
     Active Substance: ADALIMUMAB
     Indication: RHEUMATOID ARTHRITIS
     Route: 058
     Dates: start: 20190522
  2. HUMIRA [Suspect]
     Active Substance: ADALIMUMAB
     Route: 058

REACTIONS (13)
  - Floating patella [Not Recovered/Not Resolved]
  - Arthritis [Recovering/Resolving]
  - Haemoptysis [Recovered/Resolved]
  - Red blood cell count increased [Unknown]
  - Pain in extremity [Not Recovered/Not Resolved]
  - Asthenia [Recovered/Resolved]
  - Pneumonia [Recovering/Resolving]
  - Therapeutic product effect incomplete [Unknown]
  - Back pain [Not Recovered/Not Resolved]
  - Immunodeficiency [Unknown]
  - Arthralgia [Not Recovered/Not Resolved]
  - Lymphoma [Not Recovered/Not Resolved]
  - Neutrophil count increased [Unknown]

NARRATIVE: CASE EVENT DATE: 2019
